FAERS Safety Report 23624317 (Version 2)
Quarter: 2024Q1

REPORT INFORMATION
  Report Type: Report from Study
  Country: JP (occurrence: JP)
  Receive Date: 20240312
  Receipt Date: 20240318
  Transmission Date: 20240410
  Serious: Yes (Other)
  Sender: FDA-Public Use
  Company Number: JP-002147023-NVSJ2024JP002288

PATIENT
  Age: 67 Year
  Sex: Male
  Weight: 81.2 kg

DRUGS (9)
  1. BEOVU [Suspect]
     Active Substance: BROLUCIZUMAB-DBLL
     Indication: Diabetic retinal oedema
     Dosage: 6 MG, LEFT EYE
     Route: 031
     Dates: start: 20230215
  2. BEOVU [Suspect]
     Active Substance: BROLUCIZUMAB-DBLL
     Dosage: 6 MG, LEFT EYE
     Route: 031
     Dates: start: 20230311
  3. BEOVU [Suspect]
     Active Substance: BROLUCIZUMAB-DBLL
     Dosage: 6 MG, LEFT EYE
     Route: 031
     Dates: start: 20230411
  4. BEOVU [Suspect]
     Active Substance: BROLUCIZUMAB-DBLL
     Dosage: 6 MG, LEFT EYE
     Route: 031
     Dates: start: 20230609
  5. BEOVU [Suspect]
     Active Substance: BROLUCIZUMAB-DBLL
     Dosage: 6 MG, LEFT EYE
     Route: 031
     Dates: start: 20230804
  6. BEOVU [Suspect]
     Active Substance: BROLUCIZUMAB-DBLL
     Dosage: 6 MG, LEFT EYE
     Route: 031
     Dates: start: 20231027, end: 20231027
  7. TRIAMCINOLONE ACETONIDE [Concomitant]
     Active Substance: TRIAMCINOLONE ACETONIDE
     Indication: Diabetic retinal oedema
     Dosage: UNK
     Dates: start: 20230215
  8. TRIAMCINOLONE ACETONIDE [Concomitant]
     Active Substance: TRIAMCINOLONE ACETONIDE
     Indication: Eye disorder prophylaxis
     Dosage: UNK
     Dates: start: 20230609
  9. TRIAMCINOLONE ACETONIDE [Concomitant]
     Active Substance: TRIAMCINOLONE ACETONIDE
     Dosage: UNK
     Dates: start: 20231027

REACTIONS (3)
  - Persistent corneal epithelial defect [Recovered/Resolved]
  - Visual acuity reduced [Unknown]
  - Ocular hypertension [Recovering/Resolving]

NARRATIVE: CASE EVENT DATE: 20231110
